FAERS Safety Report 25056883 (Version 2)
Quarter: 2025Q2

REPORT INFORMATION
  Report Type: Report from Study
  Country: CA (occurrence: CA)
  Receive Date: 20250310
  Receipt Date: 20250508
  Transmission Date: 20250717
  Serious: Yes (Death)
  Sender: ABBVIE
  Company Number: CA-ABBVIE-6169886

PATIENT
  Age: 55 Year
  Sex: Female

DRUGS (1)
  1. SKYRIZI [Suspect]
     Active Substance: RISANKIZUMAB-RZAA
     Indication: Hidradenitis
     Route: 058
     Dates: start: 20231012, end: 20241128

REACTIONS (1)
  - Death [Fatal]

NARRATIVE: CASE EVENT DATE: 20250215
